FAERS Safety Report 6781584-5 (Version None)
Quarter: 2010Q2

REPORT INFORMATION
  Report Type: 
  Country: None (occurrence: None)
  Receive Date: 20100617
  Receipt Date: 20100617
  Transmission Date: 20101027
  Serious: Yes (Other)
  Sender: FDA-Public Use
  Company Number: None

PATIENT
  Sex: Female
  Weight: 88.43 kg

DRUGS (2)
  1. MYCOPHENOLATE MOFETIL [Suspect]
     Indication: LIVER TRANSPLANT
     Dosage: 500 MG TID PO CANNOT STOP WITHOUT ANOTHER MED TO TREAT
     Route: 048
     Dates: start: 20100525
  2. MYCOPHENOLATE MOFETIL [Suspect]
     Indication: LIVER TRANSPLANT REJECTION
     Dosage: 500 MG TID PO CANNOT STOP WITHOUT ANOTHER MED TO TREAT
     Route: 048
     Dates: start: 20100525

REACTIONS (2)
  - NAUSEA [None]
  - VOMITING [None]
